FAERS Safety Report 8403142-9 (Version None)
Quarter: 2012Q2

REPORT INFORMATION
  Report Type: 
  Country: None (occurrence: None)
  Receive Date: 20120601
  Receipt Date: 20120522
  Transmission Date: 20120825
  Serious: No
  Sender: FDA-Public Use
  Company Number: US-ELI_LILLY_AND_COMPANY-US201204004468

PATIENT
  Age: 62 Year
  Sex: Male
  Weight: 82.54 kg

DRUGS (3)
  1. CIALIS [Suspect]
     Indication: ERECTILE DYSFUNCTION
     Dosage: 5 MG, QD
     Route: 048
     Dates: start: 20120319
  2. ASPIRIN [Concomitant]
     Dosage: 81 MG, UNK
  3. MULTI-VITAMIN [Concomitant]
     Dosage: 1 DF, QD

REACTIONS (1)
  - NO ADVERSE EVENT [None]
